FAERS Safety Report 9368985 (Version 1)
Quarter: 2013Q2

REPORT INFORMATION
  Report Type: Report from Study
  Country: US (occurrence: US)
  Receive Date: 20130626
  Receipt Date: 20130626
  Transmission Date: 20140414
  Serious: Yes (Other)
  Sender: FDA-Public Use
  Company Number: PHEH2013US012624

PATIENT
  Sex: Male
  Weight: 87.98 kg

DRUGS (10)
  1. GLEEVEC [Suspect]
     Indication: MYELOID LEUKAEMIA
     Dosage: 400 MG, DAILY
     Route: 048
     Dates: start: 201207
  2. NIASPAN ER [Concomitant]
     Dosage: 500 MG, UNK
  3. LOVASTATIN [Concomitant]
     Dosage: 40 MG, UNK
  4. PLAVIX [Concomitant]
     Dosage: 75 MG, UNK
  5. PANTOPRAZOLE SODIUM [Concomitant]
     Dosage: 40 MG, UNK
  6. PANTOPRAZOLE SODIUM [Concomitant]
     Dosage: 20 MG, UNK
  7. TEMAZEPAM [Concomitant]
     Dosage: 30 MG, UNK
  8. TEMAZEPAM [Concomitant]
     Dosage: 15 UNK, UNK
  9. MICARDIS [Concomitant]
     Dosage: 40 MG, UNK
  10. MICARDIS [Concomitant]
     Dosage: 20 MG, UNK

REACTIONS (4)
  - Neoplasm malignant [Unknown]
  - Second primary malignancy [Unknown]
  - Blood testosterone decreased [Unknown]
  - Fatigue [Unknown]
